FAERS Safety Report 16967988 (Version 1)
Quarter: 2019Q4

REPORT INFORMATION
  Report Type: Report from Study
  Country: FR (occurrence: FR)
  Receive Date: 20191028
  Receipt Date: 20191028
  Transmission Date: 20200122
  Serious: Yes (Death, Hospitalization, Other)
  Sender: FDA-Public Use
  Company Number: PHHO2008FR08927

PATIENT
  Age: 70 Year
  Sex: Male
  Weight: 60 kg

DRUGS (5)
  1. ATENOLOL. [Concomitant]
     Active Substance: ATENOLOL
     Indication: PROPHYLAXIS
     Dosage: UNK
     Route: 065
  2. KARDEGIC [Concomitant]
     Active Substance: ASPIRIN DL-LYSINE
     Indication: TRANSIENT ISCHAEMIC ATTACK
     Route: 065
  3. EVEROLIMUS. [Suspect]
     Active Substance: EVEROLIMUS
     Dosage: UNK
     Route: 048
     Dates: start: 20080725, end: 20080911
  4. EVEROLIMUS. [Suspect]
     Active Substance: EVEROLIMUS
     Indication: RENAL CANCER METASTATIC
     Dosage: 10 MG, QD
     Route: 048
     Dates: start: 20070820, end: 20080711
  5. CLASTOBAN [Concomitant]
     Active Substance: CLODRONIC ACID
     Indication: PROPHYLAXIS
     Route: 065

REACTIONS (6)
  - Pulmonary arterial hypertension [Fatal]
  - Malignant neoplasm progression [Unknown]
  - Cardiac failure [Fatal]
  - Right ventricular failure [Recovering/Resolving]
  - Interstitial lung disease [Fatal]
  - Anaemia [Recovered/Resolved]

NARRATIVE: CASE EVENT DATE: 20080710
